FAERS Safety Report 17996253 (Version 1)
Quarter: 2020Q3

REPORT INFORMATION
  Report Type: Report from Study
  Country: HN (occurrence: HN)
  Receive Date: 20200708
  Receipt Date: 20200708
  Transmission Date: 20201103
  Serious: Yes (Other)
  Sender: FDA-Public Use
  Company Number: HN-BAYER-2020-053081

PATIENT
  Age: 52 Year
  Sex: Male

DRUGS (5)
  1. CARDIOASPIRINA [Concomitant]
     Active Substance: ASPIRIN
     Dosage: 81 MG
     Dates: start: 201904
  2. ATORVASTATIN [Concomitant]
     Active Substance: ATORVASTATIN
     Dosage: UNK
     Dates: start: 201904
  3. STIVARGA [Suspect]
     Active Substance: REGORAFENIB
     Indication: COLORECTAL CANCER METASTATIC
     Dosage: DAILY DOSE 160 MG
     Dates: start: 20200225
  4. ACETYLSALICYLIC ACID [Concomitant]
     Active Substance: ASPIRIN
     Dosage: UNK
     Dates: start: 201904
  5. STIVARGA [Suspect]
     Active Substance: REGORAFENIB
     Indication: COLORECTAL CANCER METASTATIC
     Dosage: DAILY DOSE 160 MG
     Dates: start: 20200303

REACTIONS (5)
  - Pain in extremity [Recovering/Resolving]
  - Thrombosis [None]
  - Diarrhoea [Recovered/Resolved]
  - Metastases to bone [Recovering/Resolving]
  - Epistaxis [None]

NARRATIVE: CASE EVENT DATE: 20200325
